FAERS Safety Report 9777646 (Version 5)
Quarter: 2015Q2

REPORT INFORMATION
  Report Type: Spontaneous
  Country: JP (occurrence: JP)
  Receive Date: 20131223
  Receipt Date: 20150406
  Transmission Date: 20150821
  Serious: Yes (Death, Hospitalization)
  Sender: FDA-Public Use
  Company Number: JP-ROCHE-1320485

PATIENT
  Age: 66 Year
  Sex: Male
  Weight: 70 kg

DRUGS (19)
  1. SOLU-MEDROL [Suspect]
     Active Substance: METHYLPREDNISOLONE SODIUM SUCCINATE
     Indication: SYSTEMIC INFLAMMATORY RESPONSE SYNDROME
     Route: 041
  2. PREDONINE [Suspect]
     Active Substance: PREDNISOLONE\PREDNISOLONE ACETATE\PREDNISOLONE SODIUM SUCCINATE
     Indication: SYSTEMIC INFLAMMATORY RESPONSE SYNDROME
     Route: 065
     Dates: start: 20130426, end: 20130503
  3. SULFAMETHOXAZOLE AND TRIMETHOPRIM [Concomitant]
     Active Substance: SULFAMETHOXAZOLE\TRIMETHOPRIM
     Dosage: DOSAGE IS UNCERTAIN.
     Route: 065
  4. RITUXAN [Suspect]
     Active Substance: RITUXIMAB
     Indication: SYSTEMIC INFLAMMATORY RESPONSE SYNDROME
     Route: 041
     Dates: start: 20130501, end: 20130501
  5. RITUXAN [Suspect]
     Active Substance: RITUXIMAB
     Indication: SYSTEMIC INFLAMMATORY RESPONSE SYNDROME
     Route: 041
     Dates: start: 20130522, end: 20130522
  6. PREDONINE [Suspect]
     Active Substance: PREDNISOLONE\PREDNISOLONE ACETATE\PREDNISOLONE SODIUM SUCCINATE
     Indication: SYSTEMIC INFLAMMATORY RESPONSE SYNDROME
     Route: 065
     Dates: start: 20130504, end: 20130517
  7. PREDONINE [Suspect]
     Active Substance: PREDNISOLONE\PREDNISOLONE ACETATE\PREDNISOLONE SODIUM SUCCINATE
     Indication: SYSTEMIC INFLAMMATORY RESPONSE SYNDROME
     Route: 065
     Dates: start: 20130518, end: 20130531
  8. MAXIPIME [Concomitant]
     Active Substance: CEFEPIME HYDROCHLORIDE
     Dosage: DOSAGE IS UNCERTAIN.
     Route: 065
  9. DENOSINE [Concomitant]
     Active Substance: GANCICLOVIR
     Indication: CYTOMEGALOVIRUS VIRAEMIA
     Dosage: DOSAGE IS UNCERTAIN.
     Route: 065
     Dates: start: 201305, end: 2013
  10. FUNGUARD [Concomitant]
     Active Substance: MICAFUNGIN SODIUM
     Dosage: DOSAGE IS UNCERTAIN.
     Route: 065
  11. RITUXAN [Suspect]
     Active Substance: RITUXIMAB
     Indication: SYSTEMIC INFLAMMATORY RESPONSE SYNDROME
     Route: 041
     Dates: start: 20130515, end: 20130515
  12. PREDONINE [Suspect]
     Active Substance: PREDNISOLONE\PREDNISOLONE ACETATE\PREDNISOLONE SODIUM SUCCINATE
     Indication: SYSTEMIC INFLAMMATORY RESPONSE SYNDROME
     Route: 065
     Dates: start: 20130601, end: 20130806
  13. HANP [Concomitant]
     Active Substance: CARPERITIDE
     Dosage: DOSAGE IS UNCERTAIN.
     Route: 065
  14. RITUXAN [Suspect]
     Active Substance: RITUXIMAB
     Indication: SYSTEMIC INFLAMMATORY RESPONSE SYNDROME
     Route: 041
     Dates: start: 20130508, end: 20130508
  15. PREDONINE [Suspect]
     Active Substance: PREDNISOLONE\PREDNISOLONE ACETATE\PREDNISOLONE SODIUM SUCCINATE
     Indication: SYSTEMIC INFLAMMATORY RESPONSE SYNDROME
     Route: 065
     Dates: start: 20130422, end: 20130425
  16. OMEPRAL [Concomitant]
     Active Substance: OMEPRAZOLE
     Dosage: DOSAGE IS UNCERTAIN.
     Route: 065
  17. ACTEMRA [Suspect]
     Active Substance: TOCILIZUMAB
     Indication: SYSTEMIC INFLAMMATORY RESPONSE SYNDROME
     Dosage: FIVE TIME IN TOTAL ADMINISTERING
     Route: 041
     Dates: start: 20130529, end: 20130724
  18. SANDIMMUNE [Suspect]
     Active Substance: CYCLOSPORINE
     Indication: SYSTEMIC INFLAMMATORY RESPONSE SYNDROME
     Dosage: 12-72MG
     Route: 065
  19. GRAN [Concomitant]
     Active Substance: FILGRASTIM
     Dosage: DOSAGE IS UNCERTAIN.
     Route: 065

REACTIONS (6)
  - Multi-organ failure [Fatal]
  - Sepsis [Fatal]
  - Cholecystitis acute [Fatal]
  - Cytomegalovirus viraemia [Fatal]
  - Acute hepatic failure [Fatal]
  - Product use issue [Unknown]

NARRATIVE: CASE EVENT DATE: 20130717
